FAERS Safety Report 7718190-1 (Version None)
Quarter: 2011Q3

REPORT INFORMATION
  Report Type: 
  Country: None (occurrence: None)
  Receive Date: 20110830
  Receipt Date: 20110818
  Transmission Date: 20111222
  Serious: Yes (Hospitalization, Disabling, Other)
  Sender: FDA-Public Use
  Company Number: PHHY2011DE40549

PATIENT
  Sex: Female

DRUGS (1)
  1. TASIGNA [Suspect]
     Dosage: 400 MG, PER DAY
     Route: 048
     Dates: start: 20070623, end: 20110525

REACTIONS (4)
  - OPTIC ISCHAEMIC NEUROPATHY [None]
  - ARTERIOSCLEROSIS [None]
  - ARTERIOSCLEROTIC RETINOPATHY [None]
  - BLINDNESS [None]
